FAERS Safety Report 19879685 (Version 1)
Quarter: 2021Q3

REPORT INFORMATION
  Report Type: Report from Study
  Country: GB (occurrence: GB)
  Receive Date: 20210924
  Receipt Date: 20210924
  Transmission Date: 20211014
  Serious: Yes (Other)
  Sender: FDA-Public Use
  Company Number: GB-TEVA-2021-GB-1956777

PATIENT
  Sex: Male

DRUGS (1)
  1. OLATUTON [Suspect]
     Active Substance: OCTREOTIDE
     Dosage: DATE OF LAST ADMINISTRATION: 31?MAR?2021
     Route: 065

REACTIONS (1)
  - Spinal cord injury [Unknown]
